FAERS Safety Report 21337021 (Version 1)
Quarter: 2022Q3

REPORT INFORMATION
  Report Type: Spontaneous
  Country: DK (occurrence: DK)
  Receive Date: 20220915
  Receipt Date: 20220915
  Transmission Date: 20221027
  Serious: Yes (Disabling)
  Sender: FDA-Public Use
  Company Number: None

PATIENT
  Age: 49 Year
  Sex: Female

DRUGS (1)
  1. MAXIDEX [Suspect]
     Active Substance: DEXAMETHASONE
     Indication: Iritis
     Dosage: UNK, (12 AUG 2019 REPORTED THAT THE PATIENT FOR MONTHS HAD BEEN DROPPING ON AND OFF)
     Route: 050
     Dates: start: 20190429, end: 20190826

REACTIONS (4)
  - Visual field defect [Not Recovered/Not Resolved]
  - Intraocular pressure increased [Recovered/Resolved]
  - Vision blurred [Recovered/Resolved]
  - Eye pain [Recovered/Resolved]

NARRATIVE: CASE EVENT DATE: 20190701
